FAERS Safety Report 5325321-X (Version None)
Quarter: 2007Q2

REPORT INFORMATION
  Report Type: 
  Country: None (occurrence: None)
  Receive Date: 20070509
  Receipt Date: 20070424
  Transmission Date: 20071010
  Serious: Yes (Hospitalization, Other)
  Sender: FDA-Public Use
  Company Number: PAR_01525_2007

PATIENT
  Age: 45 Year
  Sex: Male

DRUGS (1)
  1. CLOZAPINE [Suspect]
     Indication: SCHIZOPHRENIA
     Dosage: (150 MG QD ORAL)
     Route: 048

REACTIONS (3)
  - ANGIOEDEMA [None]
  - NEUTROPHILIA [None]
  - WHITE BLOOD CELL COUNT INCREASED [None]
